FAERS Safety Report 9408974 (Version 1)
Quarter: 2013Q3

REPORT INFORMATION
  Report Type: Spontaneous
  Country: US (occurrence: None)
  Receive Date: 20130717
  Receipt Date: 20130717
  Transmission Date: 20140515
  Serious: Yes (Other)
  Sender: FDA-Public Use
  Company Number: None

PATIENT
  Age: 63 Year
  Sex: Female
  Weight: 73.03 kg

DRUGS (10)
  1. EXJADE [Suspect]
     Indication: MYELODYSPLASTIC SYNDROME
     Route: 048
     Dates: start: 20130413, end: 20130601
  2. ISOSORB MONO [Concomitant]
  3. LOTENSIN/HCT [Concomitant]
  4. METOPRL/HCTZ [Concomitant]
  5. ASPIRIN [Concomitant]
  6. LEVOTHYROXIN [Concomitant]
  7. SIMVASTATIN [Concomitant]
  8. ATENOLOL [Concomitant]
  9. VIT D [Concomitant]
  10. FISH OIL [Concomitant]

REACTIONS (3)
  - Weight decreased [None]
  - Cardiac operation [None]
  - Serum ferritin decreased [None]
